FAERS Safety Report 13404113 (Version 2)
Quarter: 2017Q2

REPORT INFORMATION
  Report Type: Spontaneous
  Country: US (occurrence: US)
  Receive Date: 20170405
  Receipt Date: 20170418
  Transmission Date: 20170830
  Serious: Yes (Other)
  Sender: FDA-Public Use
  Company Number: US-SA-2017SA054569

PATIENT
  Sex: Female

DRUGS (1)
  1. CAPZASIN QUICK RELIEF GEL [Suspect]
     Active Substance: CAPSAICIN
     Indication: PAIN IN EXTREMITY
     Route: 065
     Dates: end: 201703

REACTIONS (1)
  - Burns second degree [Unknown]

NARRATIVE: CASE EVENT DATE: 20170313
